FAERS Safety Report 10215774 (Version 1)
Quarter: 2014Q2

REPORT INFORMATION
  Report Type: Spontaneous
  Country: US (occurrence: None)
  Receive Date: 20140603
  Receipt Date: 20140603
  Transmission Date: 20141212
  Serious: Yes (Other)
  Sender: FDA-Public Use
  Company Number: None

PATIENT
  Age: 24 Year
  Sex: Male
  Weight: 78.02 kg

DRUGS (11)
  1. HIZENTRA [Suspect]
     Indication: IMMUNODEFICIENCY COMMON VARIABLE
     Dosage: 12 GRAMS WEEKLY SUBCUTANEOUS
     Route: 058
     Dates: start: 20130220, end: 20140602
  2. OMFI [Concomitant]
  3. POTIGA [Concomitant]
  4. DIFLUCAN [Concomitant]
  5. TOPAMAX [Concomitant]
  6. MIRALAX [Concomitant]
  7. LAMICTAL [Concomitant]
  8. ATIVAN [Concomitant]
  9. CARDURA [Concomitant]
  10. XOPENEX [Concomitant]
  11. SEROQUEL [Concomitant]

REACTIONS (1)
  - Urticaria [None]
